FAERS Safety Report 21425668 (Version 1)
Quarter: 2022Q4

REPORT INFORMATION
  Report Type: Spontaneous
  Country: TR (occurrence: TR)
  Receive Date: 20221008
  Receipt Date: 20221008
  Transmission Date: 20230113
  Serious: Yes (Disabling, Other)
  Sender: FDA-Public Use
  Company Number: TR-Accord-279200

PATIENT
  Age: 29 Year
  Sex: Male

DRUGS (4)
  1. CISPLATIN [Suspect]
     Active Substance: CISPLATIN
     Indication: Germ cell cancer
     Dosage: 30 MG/DAY FOR FIVE DAYS, AND IT WAS GIVEN IN 250 CC OF 0.9% ISOTONIC NACL OVER 120 MINUTES
  2. ETOPOSIDE [Concomitant]
     Active Substance: ETOPOSIDE
     Indication: Germ cell cancer
  3. BLEOMYCIN [Concomitant]
     Active Substance: BLEOMYCIN SULFATE
     Indication: Germ cell cancer
  4. SODIUM CHLORIDE [Concomitant]
     Active Substance: SODIUM CHLORIDE
     Dosage: 0.9%, 250 CC OF 0.9% ISOTONIC NACL OVER 120 MINUTES

REACTIONS (2)
  - Deafness bilateral [Not Recovered/Not Resolved]
  - Deafness neurosensory [Not Recovered/Not Resolved]
